FAERS Safety Report 19849696 (Version 2)
Quarter: 2021Q4

REPORT INFORMATION
  Report Type: Spontaneous
  Country: JP (occurrence: JP)
  Receive Date: 20210918
  Receipt Date: 20211006
  Transmission Date: 20220303
  Serious: Yes (Death, Other)
  Sender: FDA-Public Use
  Company Number: JP-LUPIN PHARMACEUTICALS INC.-2021-17674

PATIENT
  Age: 85 Year
  Sex: Female
  Weight: 49.5 kg

DRUGS (10)
  1. METHYLPREDNISOLONE [Suspect]
     Active Substance: METHYLPREDNISOLONE
     Indication: Drug-induced liver injury
     Dosage: 1000 MILLIGRAM, QD
     Route: 065
  2. PREDONINE [Suspect]
     Active Substance: PREDNISOLONE
     Indication: Drug-induced liver injury
     Dosage: UNK
     Route: 048
  3. ALBUMIN HUMAN [Concomitant]
     Active Substance: ALBUMIN HUMAN
     Indication: Hepatorenal syndrome
     Dosage: UNK
     Route: 065
  4. NOREPINEPHRINE [Concomitant]
     Active Substance: NOREPINEPHRINE
     Indication: Hepatorenal syndrome
     Dosage: UNK
     Route: 065
  5. LEVOCETIRIZINE HYDROCHLORIDE [Concomitant]
     Active Substance: LEVOCETIRIZINE HYDROCHLORIDE
     Indication: Product used for unknown indication
     Dosage: UNK
     Route: 048
  6. AMLODIPINE BESYLATE [Concomitant]
     Active Substance: AMLODIPINE BESYLATE
     Indication: Product used for unknown indication
     Dosage: UNK
     Route: 048
  7. ATENOLOL [Concomitant]
     Active Substance: ATENOLOL
     Indication: Product used for unknown indication
     Dosage: UNK
     Route: 048
  8. TRIAZOLAM [Concomitant]
     Active Substance: TRIAZOLAM
     Indication: Product used for unknown indication
     Dosage: UNK
     Route: 048
  9. GLECAPREVIR\PIBRENTASVIR [Concomitant]
     Active Substance: GLECAPREVIR\PIBRENTASVIR
     Indication: Hepatitis C
     Dosage: UNK
     Route: 048
  10. MAGNESIUM OXIDE [Concomitant]
     Active Substance: MAGNESIUM OXIDE
     Indication: Product used for unknown indication
     Dosage: UNK
     Route: 048

REACTIONS (1)
  - Drug ineffective [Fatal]
